FAERS Safety Report 5391577-0 (Version None)
Quarter: 2007Q3

REPORT INFORMATION
  Report Type: 
  Country: None (occurrence: None)
  Receive Date: 20070719
  Receipt Date: 20070709
  Transmission Date: 20080115
  Serious: Yes (Death, Disabling, Other)
  Sender: FDA-Public Use
  Company Number: US-PURDUE-USA_2007_0028138

PATIENT
  Age: 73 Year
  Sex: Male

DRUGS (1)
  1. MS CONTIN [Suspect]
     Indication: CANCER PAIN
     Dosage: 30 MG, Q2- 4H
     Route: 048
     Dates: start: 20031020

REACTIONS (6)
  - ANOREXIA [None]
  - ANTISOCIAL BEHAVIOUR [None]
  - BLINDNESS [None]
  - MALAISE [None]
  - METASTATIC NEOPLASM [None]
  - RESTLESSNESS [None]
